FAERS Safety Report 23875969 (Version 1)
Quarter: 2024Q2

REPORT INFORMATION
  Report Type: Spontaneous
  Country: US (occurrence: US)
  Receive Date: 20240520
  Receipt Date: 20240520
  Transmission Date: 20240715
  Serious: No
  Sender: FDA-Public Use
  Company Number: US-SA-SAC20240516000208

PATIENT
  Age: 64 Year
  Sex: Female

DRUGS (1)
  1. KEVZARA [Suspect]
     Active Substance: SARILUMAB
     Indication: Polymyalgia rheumatica
     Dosage: 200 MG, QOW
     Route: 058
     Dates: start: 202403

REACTIONS (5)
  - Hyperhidrosis [Unknown]
  - Oral mucosal blistering [Unknown]
  - Fatigue [Unknown]
  - Furuncle [Unknown]
  - Oral pustule [Unknown]

NARRATIVE: CASE EVENT DATE: 20240101
